FAERS Safety Report 7728795-X (Version None)
Quarter: 2011Q3

REPORT INFORMATION
  Report Type: 
  Country: None (occurrence: None)
  Receive Date: 20110906
  Receipt Date: 20110831
  Transmission Date: 20111222
  Serious: Yes (Death, Other)
  Sender: FDA-Public Use
  Company Number: US-AMGEN-USASP2011044827

PATIENT
  Age: 78 Year
  Sex: Male

DRUGS (18)
  1. TARCEVA [Suspect]
  2. ATIVAN [Concomitant]
  3. LORTAB [Concomitant]
  4. SPIRIVA [Concomitant]
  5. FINASTERIDE [Concomitant]
  6. PRILOSEC [Concomitant]
  7. REVLIMID [Suspect]
     Indication: MYELODYSPLASTIC SYNDROME
     Dosage: UNK
     Route: 048
     Dates: start: 20090313
  8. ZOFRAN [Concomitant]
  9. NEUPOGEN [Suspect]
     Indication: PRODUCT USED FOR UNKNOWN INDICATION
     Dosage: 460 MUG, QD
     Route: 058
  10. NAPROXEN [Suspect]
     Dosage: 220 MG, QD
  11. DEXAMETHASONE [Concomitant]
  12. LASIX [Concomitant]
  13. POTASSIUM CHLORIDE [Concomitant]
  14. ASPIRIN [Concomitant]
  15. TERAZOSIN HCL [Concomitant]
  16. PAREGORIC [Concomitant]
  17. MULTIVITAMIN                       /00097801/ [Concomitant]
  18. MUSCLE RELAXANTS [Concomitant]

REACTIONS (4)
  - DEATH [None]
  - LUNG ADENOCARCINOMA [None]
  - NEOPLASM PROGRESSION [None]
  - NON-SMALL CELL LUNG CANCER [None]
